FAERS Safety Report 19967658 (Version 1)
Quarter: 2021Q4

REPORT INFORMATION
  Report Type: Spontaneous
  Country: CA (occurrence: CA)
  Receive Date: 20211019
  Receipt Date: 20211019
  Transmission Date: 20220303
  Serious: Yes (Other)
  Sender: FDA-Public Use
  Company Number: CA-NOVARTISPH-NVSC2021CA234236

PATIENT
  Age: 61 Year
  Sex: Female

DRUGS (58)
  1. ATORVASTATIN CALCIUM [Suspect]
     Active Substance: ATORVASTATIN CALCIUM
     Indication: Product used for unknown indication
     Dosage: 1 DF, QD
     Route: 065
  2. ATORVASTATIN CALCIUM [Suspect]
     Active Substance: ATORVASTATIN CALCIUM
     Dosage: 1 DF, QD
     Route: 065
  3. CYANOCOBALAMIN [Suspect]
     Active Substance: CYANOCOBALAMIN
     Indication: Product used for unknown indication
     Dosage: 1.0 ML
     Route: 042
  4. DILTIAZEM HYDROCHLORIDE [Suspect]
     Active Substance: DILTIAZEM HYDROCHLORIDE
     Indication: Product used for unknown indication
     Dosage: 1.0 DF, Q12H
     Route: 042
  5. DIMENHYDRINATE [Suspect]
     Active Substance: DIMENHYDRINATE
     Indication: Product used for unknown indication
     Route: 065
  6. FLUOXETINE HYDROCHLORIDE [Suspect]
     Active Substance: FLUOXETINE HYDROCHLORIDE
     Indication: Product used for unknown indication
     Dosage: 2 DF, Q12H
     Route: 065
  7. FUROSEMIDE [Suspect]
     Active Substance: FUROSEMIDE
     Indication: Product used for unknown indication
     Route: 065
  8. METFORMIN HYDROCHLORIDE [Suspect]
     Active Substance: METFORMIN HYDROCHLORIDE
     Indication: Product used for unknown indication
     Dosage: 1 DF, Q12H
     Route: 065
  9. MOMETASONE FUROATE [Suspect]
     Active Substance: MOMETASONE FUROATE
     Indication: Product used for unknown indication
     Dosage: 2 DF, Q12H
     Route: 065
  10. MONTELUKAST SODIUM [Suspect]
     Active Substance: MONTELUKAST SODIUM
     Indication: Product used for unknown indication
     Dosage: 1 DF, Q12H
     Route: 065
  11. GLYCOPYRROLATE [Suspect]
     Active Substance: GLYCOPYRROLATE
     Indication: Product used for unknown indication
     Dosage: 1.0 DF, QD
     Route: 065
  12. ACETAMINOPHEN [Suspect]
     Active Substance: ACETAMINOPHEN
     Indication: Product used for unknown indication
     Dosage: 1 DF, QD
     Route: 065
  13. ACETAMINOPHEN [Suspect]
     Active Substance: ACETAMINOPHEN
     Dosage: 2 DF, Q6H
     Route: 065
  14. AMITRIPTYLINE HYDROCHLORIDE [Suspect]
     Active Substance: AMITRIPTYLINE HYDROCHLORIDE
     Indication: Product used for unknown indication
     Dosage: 4.0 DF, QD
     Route: 065
  15. AMITRIPTYLINE HYDROCHLORIDE [Suspect]
     Active Substance: AMITRIPTYLINE HYDROCHLORIDE
     Dosage: 4.0 DF QD
     Route: 065
  16. ATROVENT [Suspect]
     Active Substance: IPRATROPIUM BROMIDE
     Indication: Product used for unknown indication
     Route: 065
  17. BETAMETHASONE VALERATE [Suspect]
     Active Substance: BETAMETHASONE VALERATE
     Indication: Eczema
     Dosage: UNK
     Route: 065
  18. FLOVENT [Suspect]
     Active Substance: FLUTICASONE PROPIONATE
     Indication: Product used for unknown indication
     Route: 065
  19. FLUOXETINE [Suspect]
     Active Substance: FLUOXETINE HYDROCHLORIDE
     Indication: Product used for unknown indication
     Dosage: 2.0 DF, Q12H
     Route: 065
  20. FLUTICASONE PROPIONATE [Suspect]
     Active Substance: FLUTICASONE PROPIONATE
     Indication: Product used for unknown indication
     Dosage: 2.0 DF, Q12H
     Route: 055
  21. FLUTICASONE PROPIONATE [Suspect]
     Active Substance: FLUTICASONE PROPIONATE
     Dosage: 2.0 DF, Q12H
     Route: 055
  22. FLUTICASONE PROPIONATE [Suspect]
     Active Substance: FLUTICASONE PROPIONATE
     Dosage: 1.0 DF Q12H
     Route: 065
  23. FLUTICASONE PROPIONATE [Suspect]
     Active Substance: FLUTICASONE PROPIONATE
     Dosage: 1.0 DF Q12H
     Route: 065
  24. NITROGLYCERIN [Suspect]
     Active Substance: NITROGLYCERIN
     Indication: Product used for unknown indication
     Dosage: 1.0 DF
     Route: 065
  25. INSULIN ASPART [Suspect]
     Active Substance: INSULIN ASPART
     Indication: Product used for unknown indication
     Dosage: 3.0 DF, QD
     Route: 042
  26. INSULIN ASPART [Suspect]
     Active Substance: INSULIN ASPART
     Dosage: 3.0 DF, QD
     Route: 042
  27. LACTASE [Suspect]
     Active Substance: LACTASE
     Indication: Product used for unknown indication
     Dosage: 1.0 DF, Q8H
     Route: 065
  28. LACTULOSE [Suspect]
     Active Substance: LACTULOSE
     Indication: Product used for unknown indication
     Dosage: 1.5 ML, Q12H
     Route: 065
  29. LACTULOSE [Suspect]
     Active Substance: LACTULOSE
     Dosage: 1.5 ML, Q12H
     Route: 048
  30. LOPERAMIDE [Suspect]
     Active Substance: LOPERAMIDE
     Indication: Product used for unknown indication
     Dosage: 1.0 DF, Q12H
     Route: 065
  31. LOPERAMIDE HYDROCHLORIDE [Suspect]
     Active Substance: LOPERAMIDE HYDROCHLORIDE
     Indication: Product used for unknown indication
     Dosage: 1.0 DF, Q12H
     Route: 065
  32. METHYLCOBALAMIN [Suspect]
     Active Substance: METHYLCOBALAMIN
     Indication: Product used for unknown indication
     Route: 065
  33. MONTELUKAST [Suspect]
     Active Substance: MONTELUKAST SODIUM
     Indication: Product used for unknown indication
     Dosage: 1.0 DF, QD
     Route: 065
  34. MONTELUKAST [Suspect]
     Active Substance: MONTELUKAST SODIUM
     Dosage: 1.0 DF, Q12H
     Route: 065
  35. NITROFURANTOIN [Suspect]
     Active Substance: NITROFURANTOIN
     Indication: Product used for unknown indication
     Dosage: 1.0 DF, Q12H
     Route: 065
  36. NITROFURANTOIN [Suspect]
     Active Substance: NITROFURANTOIN
     Dosage: 1.0 DF, Q12H
     Route: 065
  37. NITROGLYCERIN [Suspect]
     Active Substance: NITROGLYCERIN
     Indication: Product used for unknown indication
     Dosage: 1.0 DF
     Route: 065
  38. NUCALA [Suspect]
     Active Substance: MEPOLIZUMAB
     Indication: Product used for unknown indication
     Dosage: 100.0 MG
     Route: 058
  39. PINAVERIUM BROMIDE [Suspect]
     Active Substance: PINAVERIUM BROMIDE
     Indication: Product used for unknown indication
     Dosage: UNK
     Route: 065
  40. AZITHROMYCIN ANHYDROUS [Suspect]
     Active Substance: AZITHROMYCIN ANHYDROUS
     Indication: Product used for unknown indication
     Dosage: 3.0 DF
     Route: 065
  41. PREDNISOLONE SODIUM PHOSPHATE [Suspect]
     Active Substance: PREDNISOLONE SODIUM PHOSPHATE
     Indication: Product used for unknown indication
     Dosage: 2.0 DF, QD
     Route: 065
  42. PREDNISOLONE SODIUM PHOSPHATE [Suspect]
     Active Substance: PREDNISOLONE SODIUM PHOSPHATE
     Dosage: 1.0 DF, QD
     Route: 065
  43. PREDNISOLONE SODIUM PHOSPHATE [Suspect]
     Active Substance: PREDNISOLONE SODIUM PHOSPHATE
     Dosage: 4.0 DF, QD
     Route: 065
  44. PREDNISOLONE SODIUM PHOSPHATE [Suspect]
     Active Substance: PREDNISOLONE SODIUM PHOSPHATE
     Dosage: 3.0 DF, QD
     Route: 065
  45. PREDNISONE [Suspect]
     Active Substance: PREDNISONE
     Indication: Product used for unknown indication
     Dosage: UNK, QD
     Route: 065
  46. PREDNISONE [Suspect]
     Active Substance: PREDNISONE
     Dosage: 4.0 DF, QD
     Route: 065
  47. PREDNISONE [Suspect]
     Active Substance: PREDNISONE
     Dosage: 1.0 DF, QD
     Route: 065
  48. PREDNISONE [Suspect]
     Active Substance: PREDNISONE
     Dosage: 4.0 DF, QD
     Route: 065
  49. PREDNISONE [Suspect]
     Active Substance: PREDNISONE
     Dosage: 2.0 DF, QD
     Route: 065
  50. PREDNISONE [Suspect]
     Active Substance: PREDNISONE
     Dosage: 3.0 DF, QD
     Route: 065
  51. QUINAPRIL HYDROCHLORIDE [Suspect]
     Active Substance: QUINAPRIL HYDROCHLORIDE
     Indication: Product used for unknown indication
     Dosage: 1.0 DF, QD
     Route: 065
  52. QUINAPRIL HYDROCHLORIDE [Suspect]
     Active Substance: QUINAPRIL HYDROCHLORIDE
     Dosage: 1.0 DF, QD
     Route: 065
  53. ALBUTEROL [Suspect]
     Active Substance: ALBUTEROL
     Indication: Product used for unknown indication
     Route: 065
  54. SEMAGLUTIDE [Suspect]
     Active Substance: SEMAGLUTIDE
     Indication: Product used for unknown indication
     Dosage: 1.0 DF, QW
     Route: 058
  55. THEOPHYLLINE ANHYDROUS [Suspect]
     Active Substance: THEOPHYLLINE ANHYDROUS
     Indication: Product used for unknown indication
     Route: 065
  56. TIOTROPIUM BROMIDE [Suspect]
     Active Substance: TIOTROPIUM BROMIDE
     Indication: Product used for unknown indication
     Dosage: UNK
     Route: 055
  57. TIOTROPIUM BROMIDE [Suspect]
     Active Substance: TIOTROPIUM BROMIDE
     Dosage: 5.0 G
     Route: 055
  58. TRESIBA [Suspect]
     Active Substance: INSULIN DEGLUDEC
     Indication: Product used for unknown indication
     Dosage: 50.0 IU, QD
     Route: 065

REACTIONS (31)
  - Angina pectoris [Unknown]
  - Appetite disorder [Unknown]
  - Asthma [Unknown]
  - Chest discomfort [Unknown]
  - Cough [Unknown]
  - Depressed mood [Unknown]
  - Depressive symptom [Unknown]
  - Dyspnoea [Unknown]
  - Dyspnoea exertional [Unknown]
  - Fall [Unknown]
  - Flank pain [Unknown]
  - Heart sounds [Unknown]
  - Influenza [Unknown]
  - Injury [Unknown]
  - Lower respiratory tract infection [Unknown]
  - Nasal congestion [Unknown]
  - Productive cough [Unknown]
  - Prolonged expiration [Unknown]
  - Rales [Unknown]
  - Respiration abnormal [Unknown]
  - Rhinorrhoea [Unknown]
  - Sleep disorder due to a general medical condition [Unknown]
  - Stress [Unknown]
  - Upper respiratory tract infection [Unknown]
  - Weight decreased [Unknown]
  - Wheezing [Unknown]
  - Nasopharyngitis [Unknown]
  - Pyrexia [Unknown]
  - Chest pain [Unknown]
  - Insomnia [Unknown]
  - Malaise [Unknown]
